FAERS Safety Report 12237412 (Version 1)
Quarter: 2016Q2

REPORT INFORMATION
  Report Type: Spontaneous
  Country: AU (occurrence: AU)
  Receive Date: 20160405
  Receipt Date: 20160405
  Transmission Date: 20160815
  Serious: Yes (Hospitalization)
  Sender: FDA-Public Use
  Company Number: AU-MYLANLABS-2016M1014042

PATIENT

DRUGS (4)
  1. BUPIVACAINE. [Suspect]
     Active Substance: BUPIVACAINE
     Indication: ANAESTHESIA PROCEDURE
     Dosage: 50%
     Route: 050
  2. EPINEPHRINE. [Suspect]
     Active Substance: EPINEPHRINE
     Indication: ANAESTHESIA PROCEDURE
     Route: 050
  3. LIDOCAINE. [Suspect]
     Active Substance: LIDOCAINE
     Indication: ANAESTHESIA PROCEDURE
     Dosage: 6ML OF 50% OF LIDOCAINE (1%)
     Route: 050
  4. HYALURONIDASE [Suspect]
     Active Substance: HYALURONIDASE
     Indication: ANAESTHESIA PROCEDURE
     Route: 050

REACTIONS (2)
  - Ocular retrobulbar haemorrhage [Recovered/Resolved]
  - Periorbital haematoma [Recovered/Resolved]
